FAERS Safety Report 8733439 (Version 4)
Quarter: 2013Q1

REPORT INFORMATION
  Report Type: Spontaneous
  Country: NO (occurrence: NO)
  Receive Date: 20120821
  Receipt Date: 20130225
  Transmission Date: 20140127
  Serious: Yes (Disabling)
  Sender: FDA-Public Use
  Company Number: NO-JNJFOC-20120806794

PATIENT
  Sex: Female

DRUGS (5)
  1. REMICADE [Suspect]
     Indication: JUVENILE IDIOPATHIC ARTHRITIS
     Route: 042
     Dates: start: 200712
  2. IBUX [Concomitant]
     Indication: JUVENILE IDIOPATHIC ARTHRITIS
     Route: 065
     Dates: start: 2006
  3. METHOTREXATE [Concomitant]
     Indication: JUVENILE IDIOPATHIC ARTHRITIS
     Route: 065
     Dates: start: 2006
  4. FOLSYRE NAF [Concomitant]
     Route: 065
  5. ZOFRAN [Concomitant]
     Route: 065
     Dates: start: 2012

REACTIONS (2)
  - Initial insomnia [Not Recovered/Not Resolved]
  - Arthralgia [Unknown]
